FAERS Safety Report 24020394 (Version 1)
Quarter: 2024Q2

REPORT INFORMATION
  Report Type: Spontaneous
  Country: US (occurrence: None)
  Receive Date: 20240627
  Receipt Date: 20240627
  Transmission Date: 20240716
  Serious: No
  Sender: FDA-Public Use
  Company Number: 2024A146361

PATIENT
  Sex: Male
  Weight: 99.8 kg

DRUGS (2)
  1. CRESTOR [Suspect]
     Active Substance: ROSUVASTATIN CALCIUM
     Indication: Cardiac amyloidosis
     Route: 048
     Dates: start: 20240530, end: 20240531
  2. VYNDAMAX [Suspect]
     Active Substance: TAFAMIDIS
     Dosage: 61.0MG UNKNOWN
     Route: 048
     Dates: start: 20240531, end: 20240531

REACTIONS (4)
  - Peripheral swelling [Unknown]
  - Dyspnoea [Unknown]
  - Fatigue [Unknown]
  - Drug interaction [Unknown]
